FAERS Safety Report 5900110-3 (Version None)
Quarter: 2008Q3

REPORT INFORMATION
  Report Type: 
  Country: None (occurrence: None)
  Receive Date: 20080926
  Receipt Date: 20080918
  Transmission Date: 20090109
  Serious: Yes (Other)
  Sender: FDA-Public Use
  Company Number: IT-WYE-H06074808

PATIENT
  Age: 51 Year
  Sex: Male

DRUGS (1)
  1. PANTECTA [Suspect]
     Route: 048
     Dates: start: 20080915, end: 20080917

REACTIONS (3)
  - BRONCHOSPASM [None]
  - DIZZINESS [None]
  - URTICARIA [None]
